FAERS Safety Report 4381527-8 (Version None)
Quarter: 2004Q2

REPORT INFORMATION
  Report Type: 
  Country: None (occurrence: None)
  Receive Date: 20040621
  Receipt Date: 20040615
  Transmission Date: 20050107
  Serious: Yes (Disabling)
  Sender: FDA-Public Use
  Company Number: US-MERCK-0406USA01584

PATIENT
  Age: 71 Year
  Sex: Female

DRUGS (5)
  1. ULTRACET [Concomitant]
     Route: 065
  2. FOSAMAX [Suspect]
     Indication: OSTEOPOROSIS
     Route: 048
     Dates: start: 20030101, end: 20040101
  3. LIPITOR [Concomitant]
     Route: 065
  4. GLIPIZIDE [Concomitant]
     Route: 065
  5. EFFEXOR [Concomitant]
     Indication: DEPRESSION
     Route: 065

REACTIONS (8)
  - APHONIA [None]
  - CHOKING [None]
  - GASTRIC ULCER [None]
  - HERNIA [None]
  - OESOPHAGEAL PAIN [None]
  - PAIN IN EXTREMITY [None]
  - STOMACH DISCOMFORT [None]
  - THROAT IRRITATION [None]
